FAERS Safety Report 25668694 (Version 1)
Quarter: 2025Q3

REPORT INFORMATION
  Report Type: Spontaneous
  Country: US (occurrence: US)
  Receive Date: 20250812
  Receipt Date: 20250812
  Transmission Date: 20251020
  Serious: No
  Sender: AMGEN
  Company Number: US-AMGEN-USASP2025155382

PATIENT
  Age: 35 Year
  Sex: Female
  Weight: 64.6 kg

DRUGS (9)
  1. TEPEZZA [Suspect]
     Active Substance: TEPROTUMUMAB-TRBW
     Indication: Product used for unknown indication
     Dosage: 665 MILLIGRAM, Q3WK, (10 MILLIGRAM/KILOGRAM)
     Route: 040
     Dates: start: 20200716, end: 20200716
  2. TEPEZZA [Suspect]
     Active Substance: TEPROTUMUMAB-TRBW
     Dosage: 1326 MILLIGRAM, Q3WK
     Route: 040
     Dates: start: 20200806, end: 20200806
  3. TEPEZZA [Suspect]
     Active Substance: TEPROTUMUMAB-TRBW
     Dosage: 1318 MILLIGRAM, Q3WK,  (20 MILLIGRAM /KILOGRAM)
     Route: 040
     Dates: start: 20200827, end: 20200827
  4. TEPEZZA [Suspect]
     Active Substance: TEPROTUMUMAB-TRBW
     Dosage: 1316 MILLIGRAM, Q3WK,  (20 MILLIGRAM /KILOGRAM)
     Route: 040
     Dates: start: 20200917, end: 20200917
  5. TEPEZZA [Suspect]
     Active Substance: TEPROTUMUMAB-TRBW
     Dosage: 1316 MILLIGRAM, Q3WK,  (20 MILLIGRAM /KILOGRAM)
     Route: 040
     Dates: start: 20201009, end: 20201009
  6. TEPEZZA [Suspect]
     Active Substance: TEPROTUMUMAB-TRBW
     Dosage: 1288 MILLIGRAM, Q3WK,  (20 MILLIGRAM /KILOGRAM)
     Route: 040
     Dates: start: 20201029, end: 20201029
  7. TEPEZZA [Suspect]
     Active Substance: TEPROTUMUMAB-TRBW
     Dosage: 1274 MILLIGRAM, Q3WK, (20 MILLIGRAM /KILOGRAM)
     Route: 040
     Dates: start: 20201119, end: 20201119
  8. TEPEZZA [Suspect]
     Active Substance: TEPROTUMUMAB-TRBW
     Dosage: 1262 MILLIGRAM, Q3WK, (20 MILLIGRAM /KILOGRAM)
     Route: 040
     Dates: start: 20201210, end: 20201210
  9. SODIUM CHLORIDE [Concomitant]
     Active Substance: SODIUM CHLORIDE
     Route: 040

REACTIONS (3)
  - Fatigue [Unknown]
  - Nausea [Unknown]
  - Blood pressure abnormal [Unknown]

NARRATIVE: CASE EVENT DATE: 20200801
